FAERS Safety Report 23842452 (Version 1)
Quarter: 2024Q2

REPORT INFORMATION
  Report Type: Spontaneous
  Country: FR (occurrence: FR)
  Receive Date: 20240510
  Receipt Date: 20240510
  Transmission Date: 20240716
  Serious: Yes (Hospitalization)
  Sender: FDA-Public Use
  Company Number: None

PATIENT
  Age: 15 Year
  Sex: Male
  Weight: 75 kg

DRUGS (1)
  1. VINCRISTINE [Suspect]
     Active Substance: VINCRISTINE
     Indication: Acute lymphocytic leukaemia
     Dosage: TEVA
     Route: 042
     Dates: start: 20230703, end: 20240408

REACTIONS (2)
  - Paraesthesia [Not Recovered/Not Resolved]
  - Anaphylactoid reaction [Not Recovered/Not Resolved]

NARRATIVE: CASE EVENT DATE: 20240408
